FAERS Safety Report 14318947 (Version 4)
Quarter: 2018Q1

REPORT INFORMATION
  Report Type: Spontaneous
  Country: US (occurrence: US)
  Receive Date: 20171222
  Receipt Date: 20180202
  Transmission Date: 20180509
  Serious: Yes (Hospitalization)
  Sender: FDA-Public Use
  Company Number: US-ASTRAZENECA-2017SF26824

PATIENT
  Age: 69 Year
  Sex: Female

DRUGS (6)
  1. NEXIUM 24HR [Suspect]
     Active Substance: ESOMEPRAZOLE MAGNESIUM
     Indication: GASTROOESOPHAGEAL REFLUX DISEASE
     Dosage: UNK
     Route: 048
     Dates: start: 201710, end: 201711
  2. NEXIUM 24HR [Suspect]
     Active Substance: ESOMEPRAZOLE MAGNESIUM
     Indication: GASTROOESOPHAGEAL REFLUX DISEASE
     Dosage: UNK
     Route: 048
  3. XANAX [Concomitant]
     Active Substance: ALPRAZOLAM
  4. PREMARIN [Concomitant]
     Active Substance: ESTROGENS, CONJUGATED
  5. NEXIUM 24HR [Suspect]
     Active Substance: ESOMEPRAZOLE MAGNESIUM
     Indication: GASTROOESOPHAGEAL REFLUX DISEASE
     Dosage: UNK
     Route: 048
     Dates: start: 201710, end: 201711
  6. NEXIUM 24HR [Suspect]
     Active Substance: ESOMEPRAZOLE MAGNESIUM
     Indication: GASTROOESOPHAGEAL REFLUX DISEASE
     Dosage: UNK
     Route: 048

REACTIONS (11)
  - Feeding disorder [Unknown]
  - Abdominal discomfort [Unknown]
  - Pain [Unknown]
  - Vomiting [Unknown]
  - Weight decreased [Unknown]
  - Malaise [Recovered/Resolved]
  - Influenza like illness [Not Recovered/Not Resolved]
  - Abdominal pain upper [Recovered/Resolved]
  - Wrong drug administered [Recovered/Resolved]
  - Diarrhoea [Recovered/Resolved]
  - Arthralgia [Unknown]
